FAERS Safety Report 5484645-6 (Version None)
Quarter: 2007Q4

REPORT INFORMATION
  Report Type: 
  Country: None (occurrence: None)
  Receive Date: 20071012
  Receipt Date: 20071002
  Transmission Date: 20080405
  Serious: Yes (Other)
  Sender: FDA-Public Use
  Company Number: DE-PFIZER INC-2007082744

PATIENT
  Sex: Male

DRUGS (2)
  1. NORVASC [Suspect]
     Route: 048
  2. ALL OTHER THERAPEUTIC PRODUCTS [Concomitant]

REACTIONS (3)
  - NAUSEA [None]
  - POLYNEUROPATHY [None]
  - VERTIGO [None]
